FAERS Safety Report 7718769-7 (Version None)
Quarter: 2011Q3

REPORT INFORMATION
  Report Type: 
  Country: None (occurrence: None)
  Receive Date: 20110830
  Receipt Date: 20110818
  Transmission Date: 20111222
  Serious: Yes (Hospitalization)
  Sender: FDA-Public Use
  Company Number: FR-PFIZER INC-2011190325

PATIENT
  Age: 50 Year
  Sex: Male

DRUGS (3)
  1. CYTARABINE [Suspect]
     Indication: ACUTE MYELOID LEUKAEMIA
     Dosage: 1000 MG/M2, ALTERNATE DAY
     Route: 042
     Dates: start: 20081125, end: 20081130
  2. MYLOTARG [Suspect]
     Indication: ACUTE MYELOID LEUKAEMIA
     Dosage: 6 MG/KG, 1X/DAY
     Route: 042
     Dates: start: 20081128, end: 20081128
  3. NOVANTRONE [Suspect]
     Indication: ACUTE MYELOID LEUKAEMIA
     Dosage: 12 MG/M2, 1X/DAY
     Route: 042
     Dates: start: 20081125, end: 20081126

REACTIONS (2)
  - DEVICE RELATED INFECTION [None]
  - ESCHERICHIA SEPSIS [None]
